FAERS Safety Report 23326413 (Version 1)
Quarter: 2023Q4

REPORT INFORMATION
  Report Type: Spontaneous
  Country: US (occurrence: US)
  Receive Date: 20231221
  Receipt Date: 20231221
  Transmission Date: 20240109
  Serious: No
  Sender: FDA-Public Use
  Company Number: US-002147023-NVSC2023US148957

PATIENT
  Sex: Male

DRUGS (13)
  1. ASPIRIN [Suspect]
     Active Substance: ASPIRIN
     Indication: Psoriasis
     Dosage: UNK
     Route: 065
  2. ASPIRIN [Suspect]
     Active Substance: ASPIRIN
     Indication: Psoriatic arthropathy
  3. CLOBETASOL [Suspect]
     Active Substance: CLOBETASOL
     Indication: Psoriasis
     Dosage: UNK
     Route: 065
  4. CLOBETASOL [Suspect]
     Active Substance: CLOBETASOL
     Indication: Psoriatic arthropathy
  5. FENOFIBRATE [Suspect]
     Active Substance: FENOFIBRATE
     Indication: Psoriasis
     Dosage: UNK
     Route: 065
  6. FENOFIBRATE [Suspect]
     Active Substance: FENOFIBRATE
     Indication: Psoriatic arthropathy
  7. LISINOPRIL [Suspect]
     Active Substance: LISINOPRIL
     Indication: Psoriasis
     Dosage: UNK
     Route: 065
  8. LISINOPRIL [Suspect]
     Active Substance: LISINOPRIL
     Indication: Psoriatic arthropathy
  9. METFORMIN [Suspect]
     Active Substance: METFORMIN HYDROCHLORIDE
     Indication: Psoriasis
     Dosage: UNK
     Route: 065
  10. METFORMIN [Suspect]
     Active Substance: METFORMIN HYDROCHLORIDE
     Indication: Psoriatic arthropathy
  11. SIMVASTATIN [Suspect]
     Active Substance: SIMVASTATIN
     Indication: Psoriasis
     Dosage: UNK
     Route: 065
  12. SIMVASTATIN [Suspect]
     Active Substance: SIMVASTATIN
     Indication: Psoriatic arthropathy
  13. TALTZ [Suspect]
     Active Substance: IXEKIZUMAB
     Indication: Psoriasis
     Dosage: UNK
     Route: 065
     Dates: start: 20230210

REACTIONS (3)
  - Psoriasis [Unknown]
  - Drug ineffective [Unknown]
  - Product use in unapproved indication [Unknown]
